FAERS Safety Report 5670993-3 (Version None)
Quarter: 2008Q1

REPORT INFORMATION
  Report Type: 
  Country: None (occurrence: None)
  Receive Date: 20080312
  Receipt Date: 20080303
  Transmission Date: 20080703
  Serious: Yes (Hospitalization)
  Sender: FDA-Public Use
  Company Number: WAES 0802USA03735

PATIENT
  Age: 68 Year
  Sex: Male
  Weight: 76.6579 kg

DRUGS (9)
  1. CAP VORINOSTAT UNK [Suspect]
     Dosage: 400 MG/DAILY/PO
     Route: 048
     Dates: start: 20080129, end: 20080211
  2. CAP VORINOSTAT UNK [Suspect]
     Dosage: 400 MG/DAILY/PO
     Route: 048
     Dates: start: 20080229
  3. DECITABINE UNK [Suspect]
     Dosage: 20 MG/M[2]/IV
     Route: 042
     Dates: start: 20080129, end: 20080202
  4. DECITABINE UNK [Suspect]
     Dosage: 20 MG/M[2]/IV
     Route: 042
     Dates: start: 20080229, end: 20080303
  5. ASCORBIC ACID [Concomitant]
  6. CYANOCOBALAMIN [Concomitant]
  7. FOLIC ACID [Concomitant]
  8. GARLIC [Concomitant]
  9. VITAMINS [UNSPECIFIED) [Concomitant]

REACTIONS (5)
  - CHEST X-RAY ABNORMAL [None]
  - CHILLS [None]
  - FEBRILE NEUTROPENIA [None]
  - LUNG INFECTION [None]
  - PLEURAL EFFUSION [None]
